FAERS Safety Report 17559551 (Version 1)
Quarter: 2020Q1

REPORT INFORMATION
  Report Type: Spontaneous
  Country: FR (occurrence: FR)
  Receive Date: 20200319
  Receipt Date: 20200319
  Transmission Date: 20200409
  Serious: Yes (Other)
  Sender: FDA-Public Use
  Company Number: FR-AUROBINDO-AUR-APL-2020-013288

PATIENT
  Age: 1 Year
  Sex: Female

DRUGS (4)
  1. AERIUS [Concomitant]
     Indication: PRODUCT USED FOR UNKNOWN INDICATION
     Dosage: 2.5 MILLILITER, DAILY (TAKEN AS BACKGROUND TREATMENT IN 2018)
     Route: 065
     Dates: end: 20200228
  2. AMOXICILLIN+ CLAVULANIC ACID ARROW 100 MG/12.5MG POWDER FOR ORAL SUSPE [Suspect]
     Active Substance: AMOXICILLIN\CLAVULANIC ACID
     Indication: EAR INFECTION
     Dosage: 1 DOSE-KILOGRAM 3 TIMES A DAY (IN THE MORNING, AT NOON AND IN THE EVENING)
     Route: 048
     Dates: start: 20181227, end: 20190103
  3. DOLIPRANE [Concomitant]
     Active Substance: ACETAMINOPHEN
     Indication: PAIN
     Dosage: IN DOSE-KILOGRAM
     Route: 065
  4. AMOXICILLIN+ CLAVULANIC ACID ARROW 100 MG/12.5MG POWDER FOR ORAL SUSPE [Suspect]
     Active Substance: AMOXICILLIN\CLAVULANIC ACID
     Dosage: 1 DOSE-KILOGRAM 3 TIMES A DAY (IN THE MORNING. AT NOON AND IN THE EVENING)
     Route: 048
     Dates: start: 20200228, end: 20200302

REACTIONS (6)
  - Psychomotor hyperactivity [Recovered/Resolved]
  - Delirium [Recovered/Resolved]
  - Decreased appetite [Recovered/Resolved]
  - Logorrhoea [Recovered/Resolved]
  - Insomnia [Recovered/Resolved]
  - Diarrhoea [Recovered/Resolved]

NARRATIVE: CASE EVENT DATE: 201812
